FAERS Safety Report 9187852 (Version 1)
Quarter: 2013Q1

REPORT INFORMATION
  Report Type: Spontaneous
  Country: US (occurrence: US)
  Receive Date: 20130325
  Receipt Date: 20130325
  Transmission Date: 20140127
  Serious: No
  Sender: FDA-Public Use
  Company Number: US-MYLANLABS-2012S1012642

PATIENT
  Age: 31 Year
  Sex: Female
  Weight: 53.98 kg

DRUGS (1)
  1. FENTANYL TRANSDERMAL SYSTEM [Suspect]
     Indication: BACK PAIN
     Dosage: CHANGES Q. 72 HOURS
     Route: 062

REACTIONS (1)
  - Drug screen negative [Not Recovered/Not Resolved]
